FAERS Safety Report 17282843 (Version 3)
Quarter: 2020Q2

REPORT INFORMATION
  Report Type: Spontaneous
  Country: PT (occurrence: PT)
  Receive Date: 20200117
  Receipt Date: 20200630
  Transmission Date: 20200713
  Serious: Yes (Hospitalization, Other)
  Sender: FDA-Public Use
  Company Number: NVSC2020PT008101

PATIENT
  Age: 58 Year
  Sex: Male

DRUGS (12)
  1. MYCOPHENOLATE MOFETIL. [Suspect]
     Active Substance: MYCOPHENOLATE MOFETIL
     Indication: PROPHYLAXIS AGAINST TRANSPLANT REJECTION
     Dosage: UNK
     Route: 065
  2. TACROLIMUS. [Suspect]
     Active Substance: TACROLIMUS
     Indication: RENAL TRANSPLANT
  3. PREDNISOLONE. [Suspect]
     Active Substance: PREDNISOLONE
     Indication: RENAL TRANSPLANT
  4. RITUXIMAB. [Suspect]
     Active Substance: RITUXIMAB
     Indication: PROPHYLAXIS AGAINST TRANSPLANT REJECTION
     Dosage: 500 MG (3 ADMINISTRATIONS)
     Route: 041
  5. MYCOPHENOLIC ACID. [Suspect]
     Active Substance: MYCOPHENOLIC ACID
     Indication: IMMUNOSUPPRESSANT DRUG THERAPY
     Dosage: UNK
     Route: 065
  6. SULFAMETHOXAZOLE AND TRIMETHOPRIM [Suspect]
     Active Substance: SULFAMETHOXAZOLE\TRIMETHOPRIM
     Indication: ISOSPORIASIS
     Dosage: 80 + 400 MG
     Route: 065
  7. VALGANCICLOVIR. [Suspect]
     Active Substance: VALGANCICLOVIR
     Indication: ANTIFUNGAL PROPHYLAXIS
     Dosage: UNK
     Route: 065
  8. TACROLIMUS. [Suspect]
     Active Substance: TACROLIMUS
     Indication: PROPHYLAXIS AGAINST TRANSPLANT REJECTION
     Dosage: UNK
     Route: 065
  9. EVEROLIMUS. [Suspect]
     Active Substance: EVEROLIMUS
     Indication: PROPHYLAXIS AGAINST TRANSPLANT REJECTION
     Dosage: UNK
     Route: 065
  10. PREDNISOLONE. [Suspect]
     Active Substance: PREDNISOLONE
     Indication: PROPHYLAXIS AGAINST TRANSPLANT REJECTION
     Dosage: UNK
     Route: 065
  11. VALGANCICLOVIR. [Suspect]
     Active Substance: VALGANCICLOVIR
     Indication: ANTIVIRAL PROPHYLAXIS
  12. MYCOPHENOLATE MOFETIL. [Suspect]
     Active Substance: MYCOPHENOLATE MOFETIL
     Indication: RENAL TRANSPLANT

REACTIONS (29)
  - Renal impairment [Recovering/Resolving]
  - Transplant dysfunction [Unknown]
  - Helicobacter infection [Recovered/Resolved]
  - Diverticulum [Recovered/Resolved]
  - Abdominal pain [Unknown]
  - Kidney transplant rejection [Unknown]
  - Large intestinal ulcer [Recovering/Resolving]
  - Drug ineffective [Unknown]
  - Fibrosis [Unknown]
  - Colitis [Recovered/Resolved]
  - Diarrhoea [Recovered/Resolved]
  - Eosinophilia [Recovered/Resolved]
  - Large intestine infection [Recovering/Resolving]
  - Large intestine polyp [Recovered/Resolved]
  - Atrophy [Unknown]
  - Leukopenia [Unknown]
  - Fatigue [Recovering/Resolving]
  - Dehydration [Recovering/Resolving]
  - Isosporiasis [Recovering/Resolving]
  - Product use in unapproved indication [Unknown]
  - Blood creatinine increased [Unknown]
  - Kidney fibrosis [Recovering/Resolving]
  - Anorectal varices [Recovered/Resolved]
  - Renal transplant failure [Not Recovered/Not Resolved]
  - Metabolic acidosis [Recovering/Resolving]
  - Renal tubular atrophy [Recovering/Resolving]
  - Strongyloidiasis [Recovered/Resolved]
  - Complications of transplanted kidney [Not Recovered/Not Resolved]
  - Strongyloides test positive [Unknown]
